FAERS Safety Report 6303218-6 (Version None)
Quarter: 2009Q3

REPORT INFORMATION
  Report Type: 
  Country: None (occurrence: None)
  Receive Date: 20090810
  Receipt Date: 20090123
  Transmission Date: 20100115
  Serious: No
  Sender: FDA-Public Use
  Company Number: A0765091A

PATIENT
  Sex: Female

DRUGS (2)
  1. PAXIL [Suspect]
     Indication: DRUG USE FOR UNKNOWN INDICATION
     Route: 048
     Dates: start: 20081001
  2. ACIPHEX [Concomitant]

REACTIONS (1)
  - HAEMOPTYSIS [None]
